FAERS Safety Report 6141008-8 (Version None)
Quarter: 2009Q2

REPORT INFORMATION
  Report Type: 
  Country: None (occurrence: None)
  Receive Date: 20090402
  Receipt Date: 20090326
  Transmission Date: 20091009
  Serious: Yes (Death)
  Sender: FDA-Public Use
  Company Number: PL-ELI_LILLY_AND_COMPANY-PL200903006904

PATIENT
  Sex: Male
  Weight: 107 kg

DRUGS (6)
  1. HUMAN INSULIN (RDNA) 30REG70NPH UNK MANU [Suspect]
     Indication: DIABETES MELLITUS
     Dosage: 18 UNITS AM, 12 UNITS PM
     Route: 058
     Dates: start: 20080814
  2. METFORMAX [Concomitant]
     Indication: DIABETES MELLITUS
     Dosage: 850 D/F, X 3
     Dates: start: 20050101
  3. AMILORETIC [Concomitant]
     Indication: HYPERTENSION
     Dosage: 5 MG, UNK
     Dates: start: 20050101
  4. BISOCARD [Concomitant]
     Indication: HYPERTENSION
     Dosage: 5 MG, UNK
     Dates: start: 20050101
  5. ACCUPRO [Concomitant]
     Indication: HYPERTENSION
     Dosage: 10 G, UNK
     Dates: start: 20080101
  6. AMARYL [Concomitant]
     Indication: DIABETES MELLITUS
     Dosage: 1 G, UNK
     Dates: start: 20050101

REACTIONS (1)
  - DEATH [None]
